FAERS Safety Report 7943046-9 (Version None)
Quarter: 2011Q4

REPORT INFORMATION
  Report Type: 
  Country: None (occurrence: None)
  Receive Date: 20111128
  Receipt Date: 20111122
  Transmission Date: 20120403
  Serious: Yes (Other)
  Sender: FDA-Public Use
  Company Number: JP-BAYER-2011-113086

PATIENT
  Age: 31 Year
  Sex: Female

DRUGS (4)
  1. AVELOX [Suspect]
     Indication: PHARYNGITIS
     Dosage: DAILY DOSE 400 MG
     Route: 048
     Dates: start: 20111121
  2. TRANEXAMIC ACID [Concomitant]
     Indication: PHARYNGITIS
     Dosage: UNK
     Dates: start: 20111121
  3. LOXONIN [Concomitant]
     Indication: PHARYNGITIS
     Dosage: UNK
     Dates: start: 20111121
  4. MUCODYNE [Concomitant]
     Indication: PHARYNGITIS
     Dosage: UNK
     Route: 048
     Dates: start: 20111121

REACTIONS (3)
  - FACE OEDEMA [None]
  - DYSPHONIA [None]
  - HYPERSENSITIVITY [None]
